FAERS Safety Report 11037424 (Version 1)
Quarter: 2015Q2

REPORT INFORMATION
  Report Type: Spontaneous
  Country: None (occurrence: None)
  Receive Date: 20150415
  Receipt Date: 20150415
  Transmission Date: 20150821
  Serious: No
  Sender: FDA-Public Use
  Company Number: None

PATIENT
  Age: 31 Year
  Sex: Female
  Weight: 58.97 kg

DRUGS (3)
  1. EXCEDRIN MIGRAINE [Concomitant]
     Active Substance: ACETAMINOPHEN\ASPIRIN\CAFFEINE
  2. DAILY VITAMINS [Concomitant]
  3. SUBOXONE [Suspect]
     Active Substance: BUPRENORPHINE HYDROCHLORIDE\NALOXONE HYDROCHLORIDE
     Dosage: TAKEN UNDER THE TONGUE
     Route: 060

REACTIONS (6)
  - Skin exfoliation [None]
  - Pain [None]
  - Swollen tongue [None]
  - Glossodynia [None]
  - Candida infection [None]
  - Discomfort [None]

NARRATIVE: CASE EVENT DATE: 20150414
